FAERS Safety Report 6368458-9 (Version None)
Quarter: 2009Q3

REPORT INFORMATION
  Report Type: 
  Country: None (occurrence: None)
  Receive Date: 20090916
  Receipt Date: 20090908
  Transmission Date: 20100115
  Serious: Yes (Life-Threatening, Hospitalization, Other)
  Sender: FDA-Public Use
  Company Number: CLOF-1000683

PATIENT
  Age: 9 Year
  Sex: Male

DRUGS (9)
  1. CLOLAR [Suspect]
     Indication: ACUTE MYELOID LEUKAEMIA
     Dosage: 55 MG, QDX5; INTRAVENOUS
     Route: 042
     Dates: start: 20090630, end: 20090704
  2. CYTARABINE [Suspect]
     Indication: ACUTE MYELOID LEUKAEMIA
     Dosage: 1000 MG, QDX5; INTRAVENOUS; 105 MG, QD; INTRAVENOUS
     Route: 042
     Dates: start: 20090630, end: 20090704
  3. CYTARABINE [Suspect]
     Indication: ACUTE MYELOID LEUKAEMIA
     Dosage: 1000 MG, QDX5; INTRAVENOUS; 105 MG, QD; INTRAVENOUS
     Route: 042
     Dates: start: 20090722, end: 20090729
  4. ETOPOSIDE [Suspect]
     Indication: ACUTE MYELOID LEUKAEMIA
     Dosage: 105 MG QD; INTRAVENOUS
     Route: 042
     Dates: start: 20090722, end: 20090729
  5. DAUNORUBICIN HCL [Suspect]
     Indication: ACUTE MYELOID LEUKAEMIA
     Dosage: 52.5 MG, QD; INTRAVENOUS
     Route: 042
     Dates: start: 20090724, end: 20090728
  6. SORAFENIB (SORAFENIB) [Suspect]
     Indication: ACUTE MYELOID LEUKAEMIA
     Dosage: 200 MG QD, ORAL
     Route: 048
     Dates: start: 20090730, end: 20090810
  7. VANCOMYCIN [Concomitant]
  8. CIPROFLOXACIN (CIPROFLOXACIN) [Concomitant]
  9. MICAFUNGIN (MICAFUNGIN) [Concomitant]

REACTIONS (11)
  - ACIDOSIS [None]
  - ACUTE RESPIRATORY DISTRESS SYNDROME [None]
  - DISSEMINATED INTRAVASCULAR COAGULATION [None]
  - HAEMODIALYSIS [None]
  - HYPERBILIRUBINAEMIA [None]
  - MULTI-ORGAN FAILURE [None]
  - PETECHIAE [None]
  - PYREXIA [None]
  - RENAL FAILURE [None]
  - RESPIRATORY DISTRESS [None]
  - SEPSIS [None]
